FAERS Safety Report 4517854-0 (Version None)
Quarter: 2004Q4

REPORT INFORMATION
  Report Type: 
  Country: None (occurrence: None)
  Receive Date: 20041203
  Receipt Date: 20031112
  Transmission Date: 20050328
  Serious: No
  Sender: FDA-Public Use
  Company Number: US-BRISTOL-MYERS SQUIBB COMPANY-12435822

PATIENT
  Sex: Male

DRUGS (2)
  1. PROLIXIN [Suspect]
     Indication: MUSCLE RELAXANT THERAPY
     Route: 048
     Dates: end: 19950101
  2. ANATENSOL [Suspect]
     Indication: MUSCLE RELAXANT THERAPY
     Dosage: IN OCTOBER 2003, DOSE CHANGED TO 0.5 MG DAILY.
     Route: 048
     Dates: start: 19950101

REACTIONS (1)
  - PARKINSON'S DISEASE [None]
